FAERS Safety Report 6765238-7 (Version None)
Quarter: 2010Q2

REPORT INFORMATION
  Report Type: 
  Country: None (occurrence: None)
  Receive Date: 20100611
  Receipt Date: 20100527
  Transmission Date: 20101027
  Serious: Yes (Hospitalization, Other)
  Sender: FDA-Public Use
  Company Number: US-ASTRAZENECA-2005UW13288

PATIENT
  Age: 5107 Day
  Sex: Male
  Weight: 80.1 kg

DRUGS (19)
  1. SEROQUEL [Suspect]
     Indication: BIPOLAR I DISORDER
     Route: 048
     Dates: start: 19990101, end: 20000101
  2. SEROQUEL [Suspect]
     Route: 048
     Dates: start: 19990101, end: 20000101
  3. SEROQUEL [Suspect]
     Dosage: 50 MG TO 200 MG
     Route: 048
     Dates: start: 19991203
  4. SEROQUEL [Suspect]
     Dosage: 50 MG TO 200 MG
     Route: 048
     Dates: start: 19991203
  5. LITHIUM CARBONATE [Concomitant]
     Route: 065
  6. PAXIL [Concomitant]
     Route: 065
  7. DEPAKOTE [Concomitant]
     Route: 065
  8. AMOXICILLIN [Concomitant]
     Dosage: 125 MG TO 875 MG
     Route: 048
  9. REMERON [Concomitant]
     Route: 065
  10. LEXAPRO [Concomitant]
     Dosage: 5 TO 10 MG
     Route: 048
  11. CELEXA [Concomitant]
     Route: 065
  12. COLACE [Concomitant]
     Route: 065
  13. ALBUTEROL [Concomitant]
     Route: 065
  14. NOVALIN HUMAN INSULIN [Concomitant]
     Dosage: 1000
     Route: 065
  15. RILALIN [Concomitant]
     Route: 065
  16. LANTUS [Concomitant]
     Dosage: 29 TO 30 UNITS
     Route: 065
  17. HEPARIN [Concomitant]
     Dosage: 10 UNITS/ML
     Route: 065
  18. ALLEGRA [Concomitant]
     Route: 065
  19. HUMALOG [Concomitant]
     Route: 065

REACTIONS (9)
  - BIPOLAR DISORDER [None]
  - CONDUCT DISORDER [None]
  - DIABETES MELLITUS [None]
  - DIABETIC KETOACIDOSIS [None]
  - DIABETIC RETINOPATHY [None]
  - DRUG ABUSE [None]
  - PANIC DISORDER [None]
  - SUBSTANCE ABUSER [None]
  - TYPE 1 DIABETES MELLITUS [None]
